FAERS Safety Report 17824075 (Version 1)
Quarter: 2020Q2

REPORT INFORMATION
  Report Type: Spontaneous
  Country: US (occurrence: US)
  Receive Date: 20200526
  Receipt Date: 20200526
  Transmission Date: 20200714
  Serious: Yes (Other)
  Sender: FDA-Public Use
  Company Number: US-FRESENIUS KABI-FK202005086

PATIENT
  Age: 74 Month
  Sex: Female

DRUGS (2)
  1. ZOLEDRONIC ACID (MANUFACTURER UNKNOWN) [Suspect]
     Active Substance: ZOLEDRONIC ACID
     Indication: BONE DENSITY DECREASED
     Dosage: 0.05 MG/KG/DOSE EVERY 6 MONTHS
     Route: 042
  2. PAMIDRONATE DISODIUM. [Suspect]
     Active Substance: PAMIDRONATE DISODIUM
     Indication: BONE DENSITY DECREASED
     Dosage: 1.5 MG/KG/DOSE EVERY 3 MONTHS
     Route: 042

REACTIONS (2)
  - Autonomic nervous system imbalance [Unknown]
  - Diarrhoea [Unknown]
